FAERS Safety Report 6703681-2 (Version None)
Quarter: 2010Q2

REPORT INFORMATION
  Report Type: 
  Country: None (occurrence: None)
  Receive Date: 20100430
  Receipt Date: 20100427
  Transmission Date: 20101027
  Serious: Yes (Hospitalization)
  Sender: FDA-Public Use
  Company Number: FR-ABBOTT-06P-056-0323632-00

PATIENT
  Age: 38 Year
  Sex: Female
  Weight: 54 kg

DRUGS (2)
  1. VERCYTE TABLETS [Suspect]
     Indication: THROMBOCYTOPENIA
     Route: 048
     Dates: start: 19930630, end: 20051218
  2. ACETYLSALICYLIC ACID [Concomitant]
     Indication: DRUG USE FOR UNKNOWN INDICATION
     Route: 048

REACTIONS (1)
  - AGRANULOCYTOSIS [None]
